FAERS Safety Report 8470745-5 (Version None)
Quarter: 2012Q2

REPORT INFORMATION
  Report Type: 
  Country: None (occurrence: None)
  Receive Date: 20120627
  Receipt Date: 20120618
  Transmission Date: 20120825
  Serious: Yes (Life-Threatening, Hospitalization)
  Sender: FDA-Public Use
  Company Number: US-BAYER-2012-062292

PATIENT
  Age: 49 Year
  Sex: Female
  Weight: 93.6 kg

DRUGS (22)
  1. ALBUTEROL [Concomitant]
  2. LORAZEPAM [Concomitant]
     Dosage: 1 MG, QID
  3. EXFORGE [Concomitant]
     Dosage: DAILY
     Route: 048
  4. SKELAXIN [Concomitant]
     Dosage: 800 MG, QID
     Route: 048
  5. BUMETANIDE [Concomitant]
     Dosage: 2 MG, BID
     Route: 048
  6. BETAMETHASONE [Concomitant]
     Dosage: UNK UNK, BID
     Route: 061
  7. NEXIUM [Concomitant]
  8. TRAZODONE HCL [Concomitant]
     Dosage: 100 MG, PRN BEDTIME
     Route: 048
  9. DROSPIRENONE AND ETHINYL ESTRADIOL [Suspect]
  10. SUMATRIPTAN [Concomitant]
  11. NORCO [Concomitant]
  12. BRONCHODILATORS [Concomitant]
  13. SYMBYAX [Concomitant]
     Indication: DEPRESSION
  14. PRANDIN [Concomitant]
     Dosage: 1 MG, TID
  15. PREDNISONE TAB [Concomitant]
     Dosage: 5 MG, UNK
     Route: 048
  16. BUMEX [Concomitant]
     Indication: OEDEMA
  17. YASMIN [Suspect]
     Indication: MENSTRUAL CYCLE MANAGEMENT
  18. YASMIN [Suspect]
     Indication: HORMONE REPLACEMENT THERAPY
  19. PROPOXPHEN [Concomitant]
     Dosage: 650 MG, UNK
     Route: 048
  20. YASMIN [Suspect]
     Indication: CONTRACEPTION
  21. LYRICA [Concomitant]
     Dosage: 100 MG, QID
     Route: 048
  22. INSULIN [Concomitant]
     Indication: BLOOD GLUCOSE INCREASED

REACTIONS (2)
  - CEREBRAL INFARCTION [None]
  - PULMONARY EMBOLISM [None]
